FAERS Safety Report 9316300 (Version 1)
Quarter: 2013Q2

REPORT INFORMATION
  Report Type: Spontaneous
  Country: US (occurrence: None)
  Receive Date: 20130528
  Receipt Date: 20130528
  Transmission Date: 20140414
  Serious: Yes (Hospitalization)
  Sender: FDA-Public Use
  Company Number: None

PATIENT
  Age: 33 Year
  Sex: Female
  Weight: 97.7 kg

DRUGS (1)
  1. CISPLATIN [Suspect]
     Dosage: WEEKLY FOR 5 DOSES WITH
     Route: 042

REACTIONS (5)
  - Hypoaesthesia [None]
  - Paraesthesia [None]
  - Aphasia [None]
  - Hypomagnesaemia [None]
  - Hypokalaemia [None]
